FAERS Safety Report 18482271 (Version 1)
Quarter: 2020Q4

REPORT INFORMATION
  Report Type: Spontaneous
  Country: US (occurrence: US)
  Receive Date: 20201109
  Receipt Date: 20201109
  Transmission Date: 20210114
  Serious: No
  Sender: FDA-Public Use
  Company Number: US-FOUNDATIONCONSUMERHC-2020-US-014477

PATIENT
  Age: 17 Year
  Sex: Female
  Weight: 54.43 kg

DRUGS (2)
  1. UNSPECIFED ANTIDEPRESSANT [Concomitant]
  2. PLAN B ONE-STEP [Suspect]
     Active Substance: LEVONORGESTREL
     Indication: POST COITAL CONTRACEPTION
     Dosage: 1.5MG X2 DOSES
     Route: 048
     Dates: start: 202006, end: 20200715

REACTIONS (3)
  - Headache [Not Recovered/Not Resolved]
  - Fatigue [Not Recovered/Not Resolved]
  - Menstruation delayed [Recovered/Resolved]

NARRATIVE: CASE EVENT DATE: 202007
